FAERS Safety Report 5574595-9 (Version None)
Quarter: 2007Q4

REPORT INFORMATION
  Report Type: 
  Country: None (occurrence: None)
  Receive Date: 20071130
  Receipt Date: 20071015
  Transmission Date: 20080405
  Serious: Yes (Other)
  Sender: FDA-Public Use
  Company Number: PHEH2007US12719

PATIENT
  Age: 77 Year
  Sex: Male

DRUGS (10)
  1. TEKTURNA [Suspect]
     Indication: HYPERTENSION
     Dosage: 150 MG, QD, ORAL
     Route: 048
     Dates: start: 20070914
  2. PREVACID [Concomitant]
  3. ATENOLOL [Concomitant]
  4. ZETIA [Concomitant]
  5. ZOCOR [Concomitant]
  6. DIOVAN [Concomitant]
  7. ZANTAC 150 [Concomitant]
  8. FLONASE [Concomitant]
  9. CLONIDINE [Concomitant]
  10. DIOVAN HCT [Concomitant]

REACTIONS (3)
  - BACTERIA BLOOD IDENTIFIED [None]
  - BLOOD PRESSURE DECREASED [None]
  - DIZZINESS [None]
